FAERS Safety Report 10257730 (Version 1)
Quarter: 2014Q2

REPORT INFORMATION
  Report Type: Spontaneous
  Country: MY (occurrence: None)
  Receive Date: 20140620
  Receipt Date: 20140620
  Transmission Date: 20141212
  Serious: Yes (Other)
  Sender: FDA-Public Use
  Company Number: 2392632

PATIENT
  Age: 52 Year
  Sex: Female

DRUGS (8)
  1. CARBOPLATIN [Suspect]
     Indication: CERVIX CARCINOMA
     Route: 042
  2. DEXAMETHASONE [Concomitant]
  3. PROMETHAZINE [Concomitant]
  4. HYDROCORTISONE [Concomitant]
  5. CHLORPHENIRAMINE [Concomitant]
  6. GRANISETRON [Concomitant]
  7. PACLITAXEL [Concomitant]
  8. RANITIDINE [Concomitant]

REACTIONS (3)
  - Throat tightness [None]
  - Hot flush [None]
  - Oxygen saturation decreased [None]
